FAERS Safety Report 6407014-0 (Version None)
Quarter: 2009Q4

REPORT INFORMATION
  Report Type: 
  Country: None (occurrence: None)
  Receive Date: 20091020
  Receipt Date: 20091007
  Transmission Date: 20100525
  Serious: Yes (Hospitalization)
  Sender: FDA-Public Use
  Company Number: PHHY2009GB41479

PATIENT
  Sex: Female

DRUGS (2)
  1. CLOZARIL [Suspect]
     Indication: SCHIZOPHRENIA
     Dosage: 450 MG DAILY
     Dates: start: 20020114, end: 20090923
  2. BLOOD TRANSFUSION, AUXILIARY PRODUCTS [Concomitant]

REACTIONS (4)
  - BREAST CANCER [None]
  - HAEMOGLOBIN DECREASED [None]
  - METASTASES TO SPINE [None]
  - NEUTROPENIA [None]
